FAERS Safety Report 10246096 (Version 1)
Quarter: 2014Q2

REPORT INFORMATION
  Report Type: Spontaneous
  Country: US (occurrence: US)
  Receive Date: 20140619
  Receipt Date: 20140619
  Transmission Date: 20141212
  Serious: No
  Sender: FDA-Public Use
  Company Number: US-THROMBOGENICS INC-JET-2014-205

PATIENT
  Age: 27 Year
  Sex: Male

DRUGS (2)
  1. JETREA [Suspect]
     Indication: RETINOSCHISIS
     Dosage: 0.125 MG, ONE TIME DOSE
     Route: 031
  2. DORZOLAMIDE [Concomitant]
     Indication: PRODUCT USED FOR UNKNOWN INDICATION
     Dosage: UNK

REACTIONS (5)
  - Off label use [Unknown]
  - Drug ineffective for unapproved indication [Unknown]
  - Eye pain [Unknown]
  - Metamorphopsia [Unknown]
  - Vitreous floaters [Unknown]
